FAERS Safety Report 24396772 (Version 5)
Quarter: 2024Q4

REPORT INFORMATION
  Report Type: Spontaneous
  Country: US (occurrence: US)
  Receive Date: 20241004
  Receipt Date: 20241129
  Transmission Date: 20250114
  Serious: Yes (Death, Hospitalization, Other)
  Sender: GERON CORP
  Company Number: US-GERON CORPORATION-US-GER-24-000094

PATIENT
  Age: 83 Year
  Sex: Male

DRUGS (1)
  1. RYTELO [Suspect]
     Active Substance: IMETELSTAT SODIUM
     Indication: Product used for unknown indication
     Dosage: UNK, UNK
     Route: 065

REACTIONS (5)
  - Death [Fatal]
  - Feeling abnormal [Not Recovered/Not Resolved]
  - Acute myeloid leukaemia [Unknown]
  - Blood test abnormal [Unknown]
  - Confusional state [Unknown]
